FAERS Safety Report 6391057-X (Version None)
Quarter: 2009Q4

REPORT INFORMATION
  Report Type: 
  Country: None (occurrence: None)
  Receive Date: 20091006
  Receipt Date: 20091006
  Transmission Date: 20100525
  Serious: Yes (Other)
  Sender: FDA-Public Use
  Company Number: None

PATIENT
  Age: 24 Year
  Sex: Male
  Weight: 85.7298 kg

DRUGS (2)
  1. ISONIAZID [Suspect]
     Indication: TUBERCULIN TEST POSITIVE
     Dosage: 1 TABLET 1 DAILY PO
     Route: 048
     Dates: start: 20080626, end: 20091004
  2. PREVACID [Suspect]
     Indication: GASTROOESOPHAGEAL REFLUX DISEASE
     Dosage: 1 CAPLET 1 DAILY PO
     Route: 048
     Dates: start: 20090818, end: 20091004

REACTIONS (1)
  - HAEMATOCHEZIA [None]
